APPROVED DRUG PRODUCT: FLUTICASONE PROPIONATE
Active Ingredient: FLUTICASONE PROPIONATE
Strength: 0.005%
Dosage Form/Route: OINTMENT;TOPICAL
Application: A076300 | Product #001
Applicant: CHARTWELL RX SCIENCES LLC
Approved: May 14, 2004 | RLD: No | RS: No | Type: DISCN